FAERS Safety Report 10994945 (Version 1)
Quarter: 2015Q2

REPORT INFORMATION
  Report Type: Spontaneous
  Country: US (occurrence: US)
  Receive Date: 20150407
  Receipt Date: 20150407
  Transmission Date: 20150821
  Serious: Yes (Death, Other)
  Sender: FDA-Public Use
  Company Number: US-ELI_LILLY_AND_COMPANY-US201503010394

PATIENT
  Age: 27 Year

DRUGS (1)
  1. ZYPREXA [Suspect]
     Active Substance: OLANZAPINE
     Indication: PRODUCT USED FOR UNKNOWN INDICATION
     Dosage: UNK, UNKNOWN
     Route: 065

REACTIONS (11)
  - Homicide [Unknown]
  - Mental disorder [Unknown]
  - Visual impairment [Unknown]
  - Nightmare [Unknown]
  - Exposure via father [Unknown]
  - Completed suicide [Fatal]
  - Psychosomatic disease [Unknown]
  - Affect lability [Unknown]
  - Generalised anxiety disorder [Unknown]
  - Burnout syndrome [Unknown]
  - Depression [Unknown]

NARRATIVE: CASE EVENT DATE: 20150321
